FAERS Safety Report 4485928-9 (Version None)
Quarter: 2004Q4

REPORT INFORMATION
  Report Type: 
  Country: None (occurrence: None)
  Receive Date: 20041026
  Receipt Date: 20041014
  Transmission Date: 20050328
  Serious: Yes (Death)
  Sender: FDA-Public Use
  Company Number: 2004078515

PATIENT
  Sex: Male

DRUGS (1)
  1. ROLAIDS [Suspect]
     Dosage: ORAL
     Route: 048

REACTIONS (1)
  - PROSTATE CANCER [None]
